FAERS Safety Report 16567703 (Version 1)
Quarter: 2019Q3

REPORT INFORMATION
  Report Type: Report from Study
  Country: BR (occurrence: BR)
  Receive Date: 20190712
  Receipt Date: 20190712
  Transmission Date: 20191004
  Serious: Yes (Other)
  Sender: FDA-Public Use
  Company Number: BR-UCBSA-2019028738

PATIENT
  Age: 48 Year
  Sex: Female
  Weight: 46 kg

DRUGS (3)
  1. METOTREXATO [METHOTREXATE SODIUM] [Concomitant]
     Indication: RHEUMATOID FACTOR
     Dosage: UNK
     Route: 042
  2. DULOXETINE HYDROCHLORIDE. [Concomitant]
     Active Substance: DULOXETINE HYDROCHLORIDE
     Indication: FIBROMYALGIA
     Dosage: UNK
     Route: 048
  3. CERTOLIZUMAB PEGOL [Suspect]
     Active Substance: CERTOLIZUMAB PEGOL
     Indication: RHEUMATOID ARTHRITIS
     Dosage: 400 MILLIGRAM, EV 4 WEEKS
     Route: 058

REACTIONS (2)
  - Epistaxis [Recovered/Resolved]
  - Rheumatoid factor increased [Recovering/Resolving]

NARRATIVE: CASE EVENT DATE: 201905
